FAERS Safety Report 17002390 (Version 2)
Quarter: 2019Q4

REPORT INFORMATION
  Report Type: Spontaneous
  Country: JP (occurrence: JP)
  Receive Date: 20191107
  Receipt Date: 20191107
  Transmission Date: 20200122
  Serious: Yes (Hospitalization, Other)
  Sender: FDA-Public Use
  Company Number: JP-ALEMBIC PHARMACUETICALS LIMITED-2019SCAL000846

PATIENT

DRUGS (2)
  1. CELECOXIB. [Suspect]
     Active Substance: CELECOXIB
     Indication: BACK PAIN
     Dosage: 200 MILLIGRAM, OD
     Route: 065
  2. PREGABALIN. [Suspect]
     Active Substance: PREGABALIN
     Indication: BACK PAIN
     Dosage: 25 MILLIGRAM, OD
     Route: 065

REACTIONS (8)
  - Drug-induced liver injury [Recovered/Resolved]
  - Acute kidney injury [Unknown]
  - Acute hepatic failure [Recovered/Resolved]
  - Rash erythematous [Unknown]
  - Pyrexia [Unknown]
  - Liver disorder [Recovered/Resolved]
  - Hypersensitivity [Unknown]
  - Disseminated intravascular coagulation [Unknown]
